FAERS Safety Report 4656237-X (Version None)
Quarter: 2005Q2

REPORT INFORMATION
  Report Type: 
  Country: None (occurrence: None)
  Receive Date: 20050509
  Receipt Date: 20050308
  Transmission Date: 20051028
  Serious: No
  Sender: FDA-Public Use
  Company Number: US-GLAXOSMITHKLINE-A0548831A

PATIENT
  Age: 53 Year
  Sex: Male

DRUGS (5)
  1. AVANDAMET [Suspect]
     Route: 048
  2. LANTUS [Concomitant]
  3. ZESTRIL [Concomitant]
  4. PLENDIL [Concomitant]
  5. LIPITOR [Concomitant]

REACTIONS (2)
  - BLOOD GLUCOSE INCREASED [None]
  - GLUCOSE TOLERANCE DECREASED [None]
